FAERS Safety Report 24790683 (Version 1)
Quarter: 2024Q4

REPORT INFORMATION
  Report Type: Spontaneous
  Country: ES (occurrence: ES)
  Receive Date: 20241230
  Receipt Date: 20241230
  Transmission Date: 20250115
  Serious: Yes (Life-Threatening, Hospitalization)
  Sender: MYLAN
  Company Number: None

PATIENT
  Age: 62 Year
  Sex: Female

DRUGS (2)
  1. FENTANYL [Suspect]
     Active Substance: FENTANYL
     Indication: Product used for unknown indication
     Dosage: STRENGTH-25 MICROGRAM/HOUR
     Route: 062
     Dates: start: 20221201, end: 20241211
  2. FENTANYL [Suspect]
     Active Substance: FENTANYL
     Indication: Lumbar hernia
     Dosage: 1 DF, Q3D (1 TRANSDERMAL PATCH EVERY 3 DAYS FOR 113 DAYS)12 MCG/H
     Route: 062
     Dates: start: 20221201, end: 20241211

REACTIONS (2)
  - Poisoning deliberate [Recovered/Resolved]
  - Suicide attempt [Recovered/Resolved]

NARRATIVE: CASE EVENT DATE: 20241203
